FAERS Safety Report 21484611 (Version 1)
Quarter: 2022Q4

REPORT INFORMATION
  Report Type: Spontaneous
  Country: IN (occurrence: None)
  Receive Date: 20221020
  Receipt Date: 20221020
  Transmission Date: 20230113
  Serious: Yes (Hospitalization, Other)
  Sender: FDA-Public Use
  Company Number: IN-MICRO LABS LIMITED-ML2022-05199

PATIENT
  Sex: Female

DRUGS (8)
  1. NEVIRAPINE [Suspect]
     Active Substance: NEVIRAPINE
     Indication: Foetal exposure timing unspecified
     Route: 064
  2. NEVIRAPINE [Suspect]
     Active Substance: NEVIRAPINE
     Indication: Prophylaxis against HIV infection
     Route: 063
  3. NEVIRAPINE [Suspect]
     Active Substance: NEVIRAPINE
     Dosage: SINGLE?DOSE NPV AFTER BIRTH
  4. LAMIVUDINE [Suspect]
     Active Substance: LAMIVUDINE
     Indication: Foetal exposure timing unspecified
     Route: 064
  5. LAMIVUDINE [Suspect]
     Active Substance: LAMIVUDINE
     Route: 063
  6. ZIDOVUDINE [Suspect]
     Active Substance: ZIDOVUDINE
     Indication: Foetal exposure timing unspecified
     Route: 064
  7. ZIDOVUDINE [Suspect]
     Active Substance: ZIDOVUDINE
     Indication: Prophylaxis against HIV infection
     Route: 063
  8. ZIDOVUDINE [Suspect]
     Active Substance: ZIDOVUDINE
     Dosage: AZT PROPHYLAXIS FOR 6 WEEKS

REACTIONS (5)
  - Mitochondrial toxicity [Unknown]
  - Metabolic acidosis [Recovering/Resolving]
  - Metabolic encephalopathy [Unknown]
  - Exposure via breast milk [Unknown]
  - Foetal exposure during pregnancy [Unknown]
